FAERS Safety Report 23729193 (Version 1)
Quarter: 2024Q2

REPORT INFORMATION
  Report Type: Spontaneous
  Country: US (occurrence: US)
  Receive Date: 20240410
  Receipt Date: 20240410
  Transmission Date: 20240716
  Serious: Yes (Other)
  Sender: FDA-Public Use
  Company Number: US-AKCEA THERAPEUTICS, INC.-2024IS003230

PATIENT

DRUGS (8)
  1. TEGSEDI [Suspect]
     Active Substance: INOTERSEN SODIUM
     Indication: Hereditary neuropathic amyloidosis
     Dosage: 284 MILLIGRAM, QW (284 MG/1.5 ML PFS)
     Route: 058
     Dates: start: 20210528, end: 20210709
  2. TEGSEDI [Suspect]
     Active Substance: INOTERSEN SODIUM
     Dosage: 284 MILLIGRAM, QW
     Route: 058
     Dates: start: 20210413
  3. TEGSEDI [Suspect]
     Active Substance: INOTERSEN SODIUM
     Dosage: 284 MILLIGRAM, QW
     Route: 058
     Dates: end: 202103
  4. TEGSEDI [Suspect]
     Active Substance: INOTERSEN SODIUM
     Dosage: 284 MILLIGRAM, QW
     Route: 058
     Dates: start: 20190616
  5. ELIQUIS [Concomitant]
     Active Substance: APIXABAN
     Indication: Product used for unknown indication
     Dosage: UNK
     Route: 065
  6. POTASSIUM [Concomitant]
     Active Substance: POTASSIUM
     Indication: Product used for unknown indication
     Dosage: 595 (99) MILLIGRAM
     Route: 065
  7. GABAPENTIN [Concomitant]
     Active Substance: GABAPENTIN
     Indication: Product used for unknown indication
     Dosage: UNK
     Route: 065
  8. FUROSEMIDE [Concomitant]
     Active Substance: FUROSEMIDE
     Indication: Product used for unknown indication
     Dosage: UNK
     Route: 065

REACTIONS (20)
  - Urine protein/creatinine ratio increased [Unknown]
  - Proteinuria [Unknown]
  - Chromaturia [Unknown]
  - Urine abnormality [Unknown]
  - Bacterial test positive [Unknown]
  - Crystal urine present [Unknown]
  - Urine ketone body present [Unknown]
  - Urinary sediment present [Unknown]
  - Urinary occult blood positive [Unknown]
  - White blood cells urine positive [Unknown]
  - White blood cells urine positive [Unknown]
  - Specific gravity urine abnormal [Unknown]
  - Creatinine urine increased [Unknown]
  - Urinary casts present [Unknown]
  - Blood creatinine abnormal [Unknown]
  - Liver disorder [Unknown]
  - Glomerular filtration rate decreased [Unknown]
  - Fungal test positive [Unknown]
  - Hypoaesthesia [Not Recovered/Not Resolved]
  - Impaired work ability [Not Recovered/Not Resolved]

NARRATIVE: CASE EVENT DATE: 20210801
